FAERS Safety Report 6190726-4 (Version None)
Quarter: 2009Q2

REPORT INFORMATION
  Report Type: 
  Country: None (occurrence: None)
  Receive Date: 20090514
  Receipt Date: 20090508
  Transmission Date: 20091009
  Serious: Yes (Other)
  Sender: FDA-Public Use
  Company Number: HU-PFIZER INC-2009212044

PATIENT

DRUGS (1)
  1. SILDENAFIL CITRATE [Suspect]
     Indication: ERECTILE DYSFUNCTION
     Dosage: UNIT DOSE: UNK; FREQUENCY: UNK, UNK;
     Route: 048

REACTIONS (1)
  - PROSTATE CANCER [None]
